FAERS Safety Report 14789421 (Version 1)
Quarter: 2018Q2

REPORT INFORMATION
  Report Type: Spontaneous
  Country: US (occurrence: US)
  Receive Date: 20180423
  Receipt Date: 20180423
  Transmission Date: 20180711
  Serious: No
  Sender: FDA-Public Use
  Company Number: US-TEVA-2018-US-883369

PATIENT

DRUGS (1)
  1. VENLAFAXINE HYDROCHLORIDE. [Suspect]
     Active Substance: VENLAFAXINE HYDROCHLORIDE
     Route: 065

REACTIONS (6)
  - Hair colour changes [Unknown]
  - Rash macular [Unknown]
  - Product substitution issue [Unknown]
  - Urine output increased [Unknown]
  - Chromaturia [Unknown]
  - Vulvovaginal pruritus [Unknown]
